FAERS Safety Report 18152929 (Version 4)
Quarter: 2020Q3

REPORT INFORMATION
  Report Type: Spontaneous
  Country: US (occurrence: US)
  Receive Date: 20200814
  Receipt Date: 20200915
  Transmission Date: 20201103
  Serious: Yes (Other)
  Sender: FDA-Public Use
  Company Number: US-AMGEN-USASP2020128801

PATIENT
  Age: 71 Year
  Sex: Female
  Weight: 70.7 kg

DRUGS (2)
  1. NEULASTA [Suspect]
     Active Substance: PEGFILGRASTIM
     Indication: NEUTROPENIA
     Dosage: 6 MILLIGRAM
     Route: 065
     Dates: start: 20200416
  2. NEULASTA [Suspect]
     Active Substance: PEGFILGRASTIM
     Indication: PROPHYLAXIS

REACTIONS (3)
  - Device use error [Unknown]
  - Neutrophil count decreased [Recovered/Resolved]
  - Incorrect dose administered by device [Unknown]

NARRATIVE: CASE EVENT DATE: 20200730
